FAERS Safety Report 18361648 (Version 1)
Quarter: 2020Q4

REPORT INFORMATION
  Report Type: Spontaneous
  Country: GB (occurrence: GB)
  Receive Date: 20201008
  Receipt Date: 20201008
  Transmission Date: 20210114
  Serious: Yes (Hospitalization, Other)
  Sender: FDA-Public Use
  Company Number: GB-BAUSCH-BL-2020-028539

PATIENT
  Age: 67 Year
  Sex: Male

DRUGS (1)
  1. DEXAMETHASONE. [Suspect]
     Active Substance: DEXAMETHASONE
     Indication: NOCARDIOSIS
     Route: 065
     Dates: start: 2018

REACTIONS (3)
  - Condition aggravated [Recovering/Resolving]
  - Nocardiosis [Recovering/Resolving]
  - Unintentional use for unapproved indication [Unknown]

NARRATIVE: CASE EVENT DATE: 2018
